FAERS Safety Report 9501723 (Version 3)
Quarter: 2013Q4

REPORT INFORMATION
  Report Type: Spontaneous
  Country: US (occurrence: None)
  Receive Date: 20130107
  Receipt Date: 20131226
  Transmission Date: 20140711
  Serious: Yes (Other)
  Sender: FDA-Public Use
  Company Number: PHEH2012US022773

PATIENT
  Age: 25 Year
  Sex: Female
  Weight: 60.3 kg

DRUGS (1)
  1. GILENYA [Suspect]
     Indication: MULTIPLE SCLEROSIS
     Route: 048
     Dates: start: 20121116

REACTIONS (5)
  - Bradycardia [None]
  - Oropharyngeal pain [None]
  - Musculoskeletal chest pain [None]
  - Back pain [None]
  - Vision blurred [None]
